FAERS Safety Report 20123232 (Version 1)
Quarter: 2021Q4

REPORT INFORMATION
  Report Type: Spontaneous
  Country: FR (occurrence: FR)
  Receive Date: 20211129
  Receipt Date: 20211129
  Transmission Date: 20220303
  Serious: Yes (Hospitalization, Congenital Anomaly, Other)
  Sender: FDA-Public Use
  Company Number: FR-ABBVIE-21K-056-4176711-00

PATIENT
  Sex: Male

DRUGS (2)
  1. VALPROATE SODIUM [Suspect]
     Active Substance: VALPROATE SODIUM
     Indication: Maternal exposure timing unspecified
     Route: 064
  2. CLOBAZAM [Suspect]
     Active Substance: CLOBAZAM
     Indication: Maternal exposure timing unspecified
     Route: 064

REACTIONS (23)
  - Eating disorder [Unknown]
  - Selective eating disorder [Unknown]
  - Psychomotor retardation [Unknown]
  - Limb malformation [Unknown]
  - Heart disease congenital [Unknown]
  - Hydronephrosis [Unknown]
  - Dysmorphism [Unknown]
  - Cryptorchism [Unknown]
  - Inguinal hernia [Unknown]
  - Dacryostenosis congenital [Unknown]
  - Congenital pyelocaliectasis [Unknown]
  - Motor developmental delay [Unknown]
  - Language disorder [Unknown]
  - Cognitive disorder [Unknown]
  - Hypotonia [Unknown]
  - Cardiomyopathy [Unknown]
  - Fine motor delay [Unknown]
  - Visual impairment [Unknown]
  - Gastrooesophageal reflux disease [Unknown]
  - Ear, nose and throat disorder [Unknown]
  - Amblyopia [Unknown]
  - IIIrd nerve disorder [Unknown]
  - Anisometropia [Unknown]
